FAERS Safety Report 24854346 (Version 1)
Quarter: 2025Q1

REPORT INFORMATION
  Report Type: Report from Study
  Country: US (occurrence: US)
  Receive Date: 20250117
  Receipt Date: 20250117
  Transmission Date: 20250409
  Serious: No
  Sender: ACCORD
  Company Number: US-Accord-441667

PATIENT
  Age: 91 Year
  Sex: Female

DRUGS (1)
  1. CLOZAPINE [Suspect]
     Active Substance: CLOZAPINE
     Indication: Agitation

REACTIONS (3)
  - Drug ineffective [Unknown]
  - Off label use [Unknown]
  - Therapy interrupted [Unknown]
